FAERS Safety Report 10128432 (Version 2)
Quarter: 2014Q3

REPORT INFORMATION
  Report Type: Report from Study
  Country: GB (occurrence: GB)
  Receive Date: 20140428
  Receipt Date: 20140910
  Transmission Date: 20150326
  Serious: Yes (Other)
  Sender: FDA-Public Use
  Company Number: GB-UCBSA-118707

PATIENT
  Age: 66 Year
  Sex: Male

DRUGS (3)
  1. HYDROXYCHLOROQUINE [Concomitant]
     Active Substance: HYDROXYCHLOROQUINE
     Indication: RHEUMATOID ARTHRITIS
  2. METHOTREXATE [Concomitant]
     Active Substance: METHOTREXATE
     Indication: RHEUMATOID ARTHRITIS
  3. CERTOLIZUMAB PEGOL RA [Suspect]
     Active Substance: CERTOLIZUMAB PEGOL
     Indication: RHEUMATOID ARTHRITIS
     Dosage: UNKNOWN DOSE
     Route: 058
     Dates: start: 20120417, end: 20131015

REACTIONS (1)
  - Skin cancer [Recovered/Resolved]

NARRATIVE: CASE EVENT DATE: 20130714
